FAERS Safety Report 7345171-2 (Version None)
Quarter: 2011Q1

REPORT INFORMATION
  Report Type: 
  Country: None (occurrence: None)
  Receive Date: 20110310
  Receipt Date: 20110307
  Transmission Date: 20110831
  Serious: Yes (Disabling, Other)
  Sender: FDA-Public Use
  Company Number: US-PFIZER INC-2010146099

PATIENT
  Sex: Female

DRUGS (3)
  1. HYDROCODONE [Concomitant]
     Indication: BACK PAIN
     Dosage: UNK
     Dates: start: 20050101, end: 20100101
  2. CHANTIX [Suspect]
     Indication: SMOKING CESSATION THERAPY
     Dosage: STARTING PACK, 0.5 MG, 1.0 MG TABLETS
     Route: 048
     Dates: start: 20070308, end: 20071219
  3. DIAZEPAM [Concomitant]
     Indication: MUSCLE SPASMS
     Dosage: UNK
     Dates: start: 20060101, end: 20100101

REACTIONS (14)
  - SUICIDAL IDEATION [None]
  - ABNORMAL BEHAVIOUR [None]
  - MOOD SWINGS [None]
  - POST-TRAUMATIC STRESS DISORDER [None]
  - DEPRESSION [None]
  - ANXIETY [None]
  - ANGER [None]
  - VISUAL IMPAIRMENT [None]
  - CONVULSION [None]
  - AMNESIA [None]
  - CONFUSIONAL STATE [None]
  - RESTLESSNESS [None]
  - DISTRACTIBILITY [None]
  - PARANOIA [None]
